FAERS Safety Report 26212198 (Version 1)
Quarter: 2025Q4

REPORT INFORMATION
  Report Type: Report from Study
  Country: PK (occurrence: PK)
  Receive Date: 20251230
  Receipt Date: 20251230
  Transmission Date: 20260119
  Serious: Yes (Death)
  Sender: ROCHE
  Company Number: PK-ROCHE-10000470467

PATIENT
  Age: 60 Year
  Sex: Male

DRUGS (2)
  1. RITUXIMAB [Suspect]
     Active Substance: RITUXIMAB
     Indication: Diffuse large B-cell lymphoma
     Route: 041
     Dates: start: 20251009
  2. RITUXIMAB [Suspect]
     Active Substance: RITUXIMAB
     Dosage: 4 TH CYCLE
     Route: 041
     Dates: start: 20251211

REACTIONS (1)
  - Pulmonary embolism [Fatal]

NARRATIVE: CASE EVENT DATE: 20251218
